FAERS Safety Report 6140185-2 (Version None)
Quarter: 2009Q2

REPORT INFORMATION
  Report Type: 
  Country: None (occurrence: None)
  Receive Date: 20090401
  Receipt Date: 20090323
  Transmission Date: 20091009
  Serious: Yes (Hospitalization)
  Sender: FDA-Public Use
  Company Number: FR-ALLERGAN-0903927US

PATIENT
  Sex: Male
  Weight: 73 kg

DRUGS (1)
  1. GANFORT [Suspect]
     Indication: OPEN ANGLE GLAUCOMA
     Dosage: 1 GTT, QD
     Route: 047
     Dates: start: 20090106

REACTIONS (6)
  - APHASIA [None]
  - BRADYCARDIA [None]
  - FATIGUE [None]
  - HYPOTHERMIA [None]
  - TINNITUS [None]
  - TRANSIENT ISCHAEMIC ATTACK [None]
